FAERS Safety Report 6611456-8 (Version None)
Quarter: 2010Q1

REPORT INFORMATION
  Report Type: 
  Country: None (occurrence: None)
  Receive Date: 20100303
  Receipt Date: 20100224
  Transmission Date: 20100710
  Serious: Yes (Hospitalization, Disabling)
  Sender: FDA-Public Use
  Company Number: DK-SANOFI-AVENTIS-200711207GDDC

PATIENT
  Age: 60 Year
  Sex: Female
  Weight: 70 kg

DRUGS (8)
  1. ARAVA [Suspect]
     Indication: RHEUMATOID ARTHRITIS
     Route: 048
     Dates: start: 20001106, end: 20010920
  2. ARAVA [Suspect]
     Route: 048
     Dates: start: 20011001, end: 20060928
  3. HUMIRA [Suspect]
     Indication: RHEUMATOID ARTHRITIS
     Dosage: DOSE AS USED: UNK
     Route: 058
     Dates: start: 20060503, end: 20060609
  4. ISONIAZID [Suspect]
     Indication: DRUG USE FOR UNKNOWN INDICATION
     Dosage: DOSE AS USED: UNK
     Route: 048
     Dates: start: 20060301, end: 20060609
  5. TODOLAC [Concomitant]
     Indication: DRUG USE FOR UNKNOWN INDICATION
     Dosage: DOSE UNIT: 200 MG
     Route: 048
  6. CORODIL [Concomitant]
     Indication: DRUG USE FOR UNKNOWN INDICATION
     Dosage: DOSE AS USED: UNK
     Route: 048
  7. ELTROXIN ^GLAXO^ [Concomitant]
     Indication: DRUG USE FOR UNKNOWN INDICATION
     Dosage: DOSE AS USED: UNK DOSE UNIT: 100 MG
     Route: 048
  8. CENTYL [Concomitant]
     Indication: DRUG USE FOR UNKNOWN INDICATION
     Dosage: DOSE AS USED: UNK
     Route: 048

REACTIONS (11)
  - DERMATITIS [None]
  - ECZEMA [None]
  - HYPERSENSITIVITY [None]
  - NAIL PSORIASIS [None]
  - PRURITUS [None]
  - PSORIASIS [None]
  - RASH PRURITIC [None]
  - RASH PUSTULAR [None]
  - RASH VESICULAR [None]
  - SKIN DISORDER [None]
  - SKIN HYPERTROPHY [None]
